FAERS Safety Report 13035970 (Version 1)
Quarter: 2016Q4

REPORT INFORMATION
  Report Type: Other
  Country: US (occurrence: US)
  Receive Date: 20161216
  Receipt Date: 20161216
  Transmission Date: 20170207
  Serious: Yes (Other)
  Sender: FDA-Public Use
  Company Number: US-WARNER CHILCOTT, LLC-1060913

PATIENT
  Age: 29 Year
  Sex: Female
  Weight: 131.32 kg

DRUGS (9)
  1. NORETHINDRONE ACETATE. [Suspect]
     Active Substance: NORETHINDRONE ACETATE
     Route: 048
     Dates: start: 20160512, end: 20160613
  2. HYDROXYZINE [Concomitant]
     Active Substance: HYDROXYZINE\HYDROXYZINE HYDROCHLORIDE
  3. PEPCID-F [Concomitant]
     Dates: start: 2015
  4. LO LOESTRIN FE [Suspect]
     Active Substance: ETHINYL ESTRADIOL\NORETHINDRONE ACETATE
     Indication: ENDOMETRIOSIS
     Route: 048
     Dates: end: 20160530
  5. LEUPROLIDE ACETATE. [Suspect]
     Active Substance: LEUPROLIDE ACETATE
     Route: 030
     Dates: start: 20160512, end: 20160613
  6. OMEPRAZOLE. [Concomitant]
     Active Substance: OMEPRAZOLE
  7. OXYCODONE [Concomitant]
     Active Substance: OXYCODONE
  8. ZOFRAN [Concomitant]
     Active Substance: ONDANSETRON HYDROCHLORIDE
  9. TOPAMAX [Concomitant]
     Active Substance: TOPIRAMATE

REACTIONS (8)
  - Anxiety [Unknown]
  - Condition aggravated [Not Recovered/Not Resolved]
  - Suicidal ideation [Recovered/Resolved]
  - Pelvic pain [Unknown]
  - Mood swings [Not Recovered/Not Resolved]
  - Vaginal haemorrhage [Not Recovered/Not Resolved]
  - Abdominal pain [Not Recovered/Not Resolved]
  - Product use issue [None]

NARRATIVE: CASE EVENT DATE: 20160516
